FAERS Safety Report 17895817 (Version 1)
Quarter: 2020Q2

REPORT INFORMATION
  Report Type: Spontaneous
  Country: US (occurrence: US)
  Receive Date: 20200615
  Receipt Date: 20200615
  Transmission Date: 20200714
  Serious: No
  Sender: FDA-Public Use
  Company Number: None

PATIENT
  Age: 67 Year
  Sex: Male
  Weight: 96.75 kg

DRUGS (12)
  1. DOCUSATE [Concomitant]
     Active Substance: DOCUSATE
  2. TEMOZOLOMIDE. [Suspect]
     Active Substance: TEMOZOLOMIDE
     Indication: BRAIN NEOPLASM MALIGNANT
     Route: 048
     Dates: start: 20190925, end: 20200615
  3. FINASTERIDE. [Concomitant]
     Active Substance: FINASTERIDE
  4. HEPARIN [Concomitant]
     Active Substance: HEPARIN SODIUM
  5. SENNA [Concomitant]
     Active Substance: SENNA LEAF\SENNOSIDES\SENNOSIDES A AND B
  6. FAMOTIDINE. [Concomitant]
     Active Substance: FAMOTIDINE
  7. TYLENOL [Concomitant]
     Active Substance: ACETAMINOPHEN
  8. VITAMIN D3 [Concomitant]
     Active Substance: CHOLECALCIFEROL
  9. TAMSULOSIN [Concomitant]
     Active Substance: TAMSULOSIN
  10. KEPPRA [Concomitant]
     Active Substance: LEVETIRACETAM
  11. ZOFRAN [Concomitant]
     Active Substance: ONDANSETRON HYDROCHLORIDE
  12. BACTRIM [Concomitant]
     Active Substance: SULFAMETHOXAZOLE\TRIMETHOPRIM

REACTIONS (1)
  - Hospice care [None]

NARRATIVE: CASE EVENT DATE: 20200615
